FAERS Safety Report 24679964 (Version 1)
Quarter: 2024Q4

REPORT INFORMATION
  Report Type: Report from Study
  Country: ZA (occurrence: ZA)
  Receive Date: 20241129
  Receipt Date: 20241129
  Transmission Date: 20250115
  Serious: Yes (Hospitalization)
  Sender: ALEXION PHARMACEUTICALS
  Company Number: ZA-AstraZeneca-CH-00749988A

PATIENT
  Age: 78 Year

DRUGS (7)
  1. BUDESONIDE\FORMOTEROL [Suspect]
     Active Substance: BUDESONIDE\FORMOTEROL
     Indication: Asthma
     Dosage: 160 MICROGRAM PER INHALATION
  2. BUDESONIDE\FORMOTEROL [Suspect]
     Active Substance: BUDESONIDE\FORMOTEROL
     Dosage: 160 MICROGRAM PER INHALATION
  3. NIFEDIPINE [Concomitant]
     Active Substance: NIFEDIPINE
     Indication: Hypertension
     Dosage: 30 MILLIGRAM
  4. ADCO ALCOPHYLLIN [Concomitant]
     Dosage: 26.667 MILLIGRAM, UNK
  5. Austell clarithromycin [Concomitant]
     Dosage: 500 MILLIGRAM, UNK
  6. Belair [Concomitant]
     Indication: Asthma
     Dosage: 10 MILLIGRAM, UNK
  7. Spiractin [Concomitant]
     Indication: Rhinitis allergic
     Dosage: 0.5 MILLIGRAM, UNK

REACTIONS (1)
  - Renal disorder [Recovered/Resolved]
